FAERS Safety Report 5564132-7 (Version None)
Quarter: 2007Q4

REPORT INFORMATION
  Report Type: 
  Country: None (occurrence: None)
  Receive Date: 20071217
  Receipt Date: 20071205
  Transmission Date: 20080405
  Serious: Yes (Hospitalization, Other)
  Sender: FDA-Public Use
  Company Number: US-PFIZER INC-2007103173

PATIENT
  Sex: Female
  Weight: 75 kg

DRUGS (8)
  1. CHANTIX [Suspect]
     Dates: start: 20071001, end: 20071001
  2. ZOLPIDEM TARTRATE [Concomitant]
  3. PALIPERIDONE [Concomitant]
  4. LISINOPRIL [Concomitant]
  5. VALIUM [Concomitant]
  6. METFORMIN HCL [Concomitant]
  7. PROZAC [Concomitant]
  8. GLIPIZIDE [Concomitant]

REACTIONS (3)
  - DEPRESSION [None]
  - SCHIZOPHRENIA [None]
  - SUICIDAL IDEATION [None]
